FAERS Safety Report 8270306 (Version 3)
Quarter: 2013Q2

REPORT INFORMATION
  Report Type: Spontaneous
  Country: US (occurrence: None)
  Receive Date: 20111122
  Receipt Date: 20130107
  Transmission Date: 20140414
  Serious: Yes (Other)
  Sender: FDA-Public Use
  Company Number: PHHY2011US18911

PATIENT
  Age: 40 Year
  Sex: Female

DRUGS (1)
  1. GILENYA (FTY) CAPSULE, 0.5 MG [Suspect]
     Indication: MULTIPLE SCLEROSIS
     Dosage: 0.5 MG, QD, ORAL
     Route: 048
     Dates: start: 20101229, end: 20110224

REACTIONS (7)
  - VISION BLURRED [None]
  - Macular oedema [None]
  - Migraine [None]
  - Retinal oedema [None]
  - Visual acuity reduced [None]
  - Eye pain [None]
  - Photophobia [None]
